FAERS Safety Report 9985685 (Version 3)
Quarter: 2014Q1

REPORT INFORMATION
  Report Type: Spontaneous
  Country: CA (occurrence: CA)
  Receive Date: 20140307
  Receipt Date: 20140312
  Transmission Date: 20141002
  Serious: Yes (Other)
  Sender: FDA-Public Use
  Company Number: CHPA2014CA003303

PATIENT
  Age: 81 Year
  Sex: Female

DRUGS (3)
  1. EX-LAX CHOCOLATED PIECES [Suspect]
     Indication: CONSTIPATION
     Dosage: 1 DF, PRN
     Route: 048
  2. TYLENOL [Concomitant]
  3. PREPARATION H CREAM [Concomitant]

REACTIONS (3)
  - Haemorrhoids [Recovering/Resolving]
  - Anorectal discomfort [Recovering/Resolving]
  - Pain [Recovering/Resolving]
